FAERS Safety Report 6369653-5 (Version None)
Quarter: 2009Q3

REPORT INFORMATION
  Report Type: 
  Country: None (occurrence: None)
  Receive Date: 20090923
  Receipt Date: 20090909
  Transmission Date: 20100115
  Serious: Yes (Hospitalization)
  Sender: FDA-Public Use
  Company Number: PHHY2009BR39157

PATIENT
  Age: 58 Year
  Sex: Female
  Weight: 70 kg

DRUGS (14)
  1. CATAFLAM [Suspect]
     Indication: PSORIATIC ARTHROPATHY
     Route: 048
  2. VOLTAREN [Suspect]
     Indication: PSORIATIC ARTHROPATHY
     Dosage: UNK
     Route: 048
  3. SIRDALUD [Suspect]
     Indication: PSORIATIC ARTHROPATHY
     Dosage: UNK
     Route: 048
  4. NOVALGINA [Suspect]
     Indication: PSORIATIC ARTHROPATHY
     Dosage: 1 G, BID
     Route: 048
  5. INDOCIN [Suspect]
     Indication: PSORIATIC ARTHROPATHY
     Route: 048
  6. SULFASALAZINE [Suspect]
     Indication: PSORIATIC ARTHROPATHY
     Route: 048
  7. BIOFENAC ^UCB^ [Suspect]
     Indication: PSORIATIC ARTHROPATHY
     Route: 048
  8. DIPROSPAN [Suspect]
     Indication: PSORIATIC ARTHROPATHY
     Route: 048
  9. TYLEX                              /00116401/ [Suspect]
     Indication: PSORIATIC ARTHROPATHY
     Route: 048
  10. THALIDOMIDE [Suspect]
     Indication: PSORIATIC ARTHROPATHY
     Route: 048
  11. ARCOXIA [Suspect]
     Indication: PSORIATIC ARTHROPATHY
     Dosage: 120 MG, UNK
     Route: 048
  12. VIOXX [Suspect]
     Indication: PSORIATIC ARTHROPATHY
     Dosage: 25 MG, UNK
     Route: 048
  13. VIOXX [Suspect]
     Dosage: 50 MG, UNK
     Route: 048
  14. DORFLEX [Suspect]
     Indication: PSORIATIC ARTHROPATHY
     Dosage: 500 MG, UNK
     Route: 048

REACTIONS (6)
  - ARTHRALGIA [None]
  - DENTAL IMPLANTATION [None]
  - GALLBLADDER DISORDER [None]
  - GALLBLADDER OPERATION [None]
  - PROCEDURAL COMPLICATION [None]
  - TOOTH AVULSION [None]
